FAERS Safety Report 8211487-0 (Version None)
Quarter: 2012Q1

REPORT INFORMATION
  Report Type: 
  Country: None (occurrence: None)
  Receive Date: 20120315
  Receipt Date: 20120312
  Transmission Date: 20120608
  Serious: Yes (Other)
  Sender: FDA-Public Use
  Company Number: US-PFIZER INC-2012061292

PATIENT
  Sex: Female

DRUGS (9)
  1. CRESTOR [Concomitant]
     Dosage: UNK
  2. RAPAMUNE [Concomitant]
     Dosage: UNK
  3. CHANTIX [Suspect]
     Indication: SMOKING CESSATION THERAPY
     Dosage: 0.5 MG, 1X/DAY
     Route: 048
     Dates: start: 20120303
  4. VITAMIN D [Concomitant]
     Dosage: UNK
  5. PREMPRO [Concomitant]
     Dosage: UNK
  6. MULTI-VITAMINS [Concomitant]
     Dosage: UNK
  7. ASPIRIN [Concomitant]
     Dosage: UNK
  8. NEXIUM [Concomitant]
     Dosage: UNK
  9. CHANTIX [Suspect]
     Dosage: 0.5 MG, 2X/DAY
     Route: 048

REACTIONS (3)
  - ROTATOR CUFF SYNDROME [None]
  - INFLUENZA LIKE ILLNESS [None]
  - PAIN [None]
